FAERS Safety Report 7393857-6 (Version None)
Quarter: 2011Q1

REPORT INFORMATION
  Report Type: 
  Country: None (occurrence: None)
  Receive Date: 20110330
  Receipt Date: 20110330
  Transmission Date: 20110831
  Serious: No
  Sender: FDA-Public Use
  Company Number: None

PATIENT
  Age: 74 Year
  Sex: Male
  Weight: 70.3075 kg

DRUGS (1)
  1. LEVAQUIN 500MG PRICARA, JANSSEN PHARMACEUTICALS [Suspect]
     Indication: BACTERIAL INFECTION
     Dosage: 1 DAILY PO
     Route: 048
     Dates: start: 20110325, end: 20110329

REACTIONS (2)
  - WEIGHT BEARING DIFFICULTY [None]
  - TENDON PAIN [None]
